FAERS Safety Report 9748668 (Version 1)
Quarter: 2013Q4

REPORT INFORMATION
  Report Type: Spontaneous
  Country: US (occurrence: US)
  Receive Date: 20131212
  Receipt Date: 20131212
  Transmission Date: 20140711
  Serious: Yes (Hospitalization, Other)
  Sender: FDA-Public Use
  Company Number: US-ELI_LILLY_AND_COMPANY-US201312001706

PATIENT
  Age: 68 Year
  Sex: Male

DRUGS (13)
  1. EFFIENT [Suspect]
     Indication: ACUTE CORONARY SYNDROME
     Dosage: 10 MG, QD
     Dates: start: 201303
  2. EFFIENT [Suspect]
     Indication: PERCUTANEOUS CORONARY INTERVENTION
  3. CYMBALTA [Concomitant]
     Dosage: 30 MG, UNKNOWN
  4. ASPIRIN [Concomitant]
     Dosage: UNK
  5. ACEON [Concomitant]
     Dosage: 2 MG, UNKNOWN
  6. HYDROCODONE [Concomitant]
  7. TRAMADOL [Concomitant]
     Dosage: 50 MG, UNKNOWN
  8. DIGOXIN [Concomitant]
     Dosage: 0.125 MG, UNKNOWN
  9. SOTALOL [Concomitant]
     Dosage: 80 MG, UNKNOWN
  10. CRESTOR [Concomitant]
     Dosage: 10 MG, UNKNOWN
  11. CARVEDILOL [Concomitant]
     Dosage: 3.125 MG, UNKNOWN
  12. OMEGA 3                            /01334101/ [Concomitant]
  13. VITAMIN D3 [Concomitant]

REACTIONS (2)
  - Cerebrovascular accident [Recovered/Resolved]
  - Fall [Recovered/Resolved]
